FAERS Safety Report 22323329 (Version 1)
Quarter: 2023Q2

REPORT INFORMATION
  Report Type: Spontaneous
  Country: ES (occurrence: ES)
  Receive Date: 20230516
  Receipt Date: 20230516
  Transmission Date: 20230722
  Serious: Yes (Other)
  Sender: FDA-Public Use
  Company Number: None

PATIENT
  Age: 25 Year
  Sex: Female
  Weight: 53 kg

DRUGS (2)
  1. HYDROXYUREA [Suspect]
     Active Substance: HYDROXYUREA
     Indication: Essential thrombocythaemia
     Dosage: 2 PASTILLAS LUNES, MI?RCOLES Y VIERNES. 3 PASTILLAS MARTES, JUEVES, S?BADO Y DOMINGO; ?2 TABLETS...
     Route: 048
     Dates: start: 201709
  2. NEXIUM MUPS 20 mg COMPRIMIDOS GASTRORRESISTENTES , 28 comprimidos [Concomitant]
     Dosage: 1 PER DAY
     Dates: start: 2019

REACTIONS (1)
  - Amenorrhoea [Not Recovered/Not Resolved]

NARRATIVE: CASE EVENT DATE: 20230401
